FAERS Safety Report 6262345-2 (Version None)
Quarter: 2009Q3

REPORT INFORMATION
  Report Type: 
  Country: None (occurrence: None)
  Receive Date: 20090709
  Receipt Date: 20090701
  Transmission Date: 20100115
  Serious: Yes (Hospitalization)
  Sender: FDA-Public Use
  Company Number: PHHY2009JP20497

PATIENT

DRUGS (3)
  1. GLEEVEC [Suspect]
     Indication: GASTROINTESTINAL STROMAL TUMOUR
     Dosage: 200 MG/DAY
     Route: 048
     Dates: start: 20080401
  2. GLEEVEC [Suspect]
     Dosage: 300 MG DAILY
     Route: 048
     Dates: start: 20090618, end: 20090625
  3. BLOOD TRANSFUSION, AUXILIARY PRODUCTS [Suspect]

REACTIONS (6)
  - BLOOD PRESSURE DECREASED [None]
  - HAEMATEMESIS [None]
  - HAEMOGLOBIN DECREASED [None]
  - MELAENA [None]
  - NEPHRITIS [None]
  - RENAL IMPAIRMENT [None]
